FAERS Safety Report 8265828-9 (Version None)
Quarter: 2012Q2

REPORT INFORMATION
  Report Type: 
  Country: None (occurrence: None)
  Receive Date: 20120404
  Receipt Date: 20120321
  Transmission Date: 20120825
  Serious: Yes (Other)
  Sender: FDA-Public Use
  Company Number: 12-229

PATIENT
  Age: 76 Year
  Sex: Female
  Weight: 54 kg

DRUGS (5)
  1. MULTI-VITAMINS [Concomitant]
  2. NAPROXEN SODIUM [Suspect]
     Indication: BACK PAIN
     Dosage: 1 DF, PRN, ORAL
     Route: 048
     Dates: start: 20120320
  3. CALCIUM CARBONATE [Concomitant]
  4. CITRACAL (CALCIUM CITRATE) [Concomitant]
  5. PRAVASTATIN [Concomitant]

REACTIONS (5)
  - NAUSEA [None]
  - RESPIRATORY RATE INCREASED [None]
  - DRY MOUTH [None]
  - FEELING HOT [None]
  - DYSPNOEA [None]
